FAERS Safety Report 25336622 (Version 1)
Quarter: 2025Q2

REPORT INFORMATION
  Report Type: Spontaneous
  Country: US (occurrence: US)
  Receive Date: 20250520
  Receipt Date: 20250520
  Transmission Date: 20250717
  Serious: No
  Sender: LEO PHARM
  Company Number: US-LEO Pharma-379557

PATIENT
  Age: 59 Year
  Sex: Male

DRUGS (1)
  1. ADBRY [Suspect]
     Active Substance: TRALOKINUMAB-LDRM
     Indication: Asthma
     Dosage: TREATMENT IS ONGOING
     Route: 058
     Dates: start: 20250422

REACTIONS (4)
  - Rash erythematous [Unknown]
  - Erythema [Unknown]
  - Product use in unapproved indication [Unknown]
  - Dry skin [Unknown]
